FAERS Safety Report 10150210 (Version 1)
Quarter: 2014Q2

REPORT INFORMATION
  Report Type: Spontaneous
  Country: US (occurrence: None)
  Receive Date: 20140501
  Receipt Date: 20140501
  Transmission Date: 20141212
  Serious: Yes (Hospitalization)
  Sender: FDA-Public Use
  Company Number: None

PATIENT
  Age: 54 Year
  Sex: Male

DRUGS (11)
  1. INSULIN [Suspect]
     Indication: HYPERKALAEMIA
     Dosage: 10 U
     Route: 058
     Dates: start: 20130917, end: 20130917
  2. HEPARIN [Concomitant]
  3. WARFARIN [Concomitant]
  4. ASPIRIN [Concomitant]
  5. CALCIUM GLUCONATE [Concomitant]
  6. DOCUSATE [Concomitant]
  7. ENALAPRILAT [Concomitant]
  8. FAMOTIDINE [Concomitant]
  9. HYDRALAZINE [Concomitant]
  10. LABETALOL [Concomitant]
  11. LORAZEPAM [Concomitant]

REACTIONS (1)
  - Blood glucose decreased [None]
